FAERS Safety Report 22031365 (Version 3)
Quarter: 2024Q2

REPORT INFORMATION
  Report Type: Spontaneous
  Country: US (occurrence: US)
  Receive Date: 20230224
  Receipt Date: 20240403
  Transmission Date: 20240716
  Serious: No
  Sender: FDA-Public Use
  Company Number: US-Axellia-004522

PATIENT
  Age: 32 Year
  Sex: Female
  Weight: 50 kg

DRUGS (9)
  1. VANCOMYCIN [Suspect]
     Active Substance: VANCOMYCIN
     Indication: Osteomyelitis
     Dosage: VANCO-PREMIXED
     Route: 042
     Dates: start: 20221201, end: 20221201
  2. CEFTRIAXONE [Suspect]
     Active Substance: CEFTRIAXONE\CEFTRIAXONE SODIUM
     Indication: Cellulitis
     Route: 042
     Dates: start: 20221201, end: 20221201
  3. PIPERACILLIN AND TAZOBACTAM [Suspect]
     Active Substance: PIPERACILLIN SODIUM\TAZOBACTAM SODIUM
     Indication: Cellulitis
     Route: 042
     Dates: start: 20221201, end: 20221202
  4. KETOROLAC [Suspect]
     Active Substance: KETOROLAC TROMETHAMINE
     Indication: Pain
     Route: 042
     Dates: start: 20221201, end: 20221202
  5. CLONIDINE [Suspect]
     Active Substance: CLONIDINE
     Indication: Drug withdrawal syndrome
     Route: 048
     Dates: start: 20221201, end: 20221201
  6. LORAZEPAM [Suspect]
     Active Substance: LORAZEPAM
     Indication: Anxiety
     Route: 042
     Dates: start: 20221201, end: 20221202
  7. NICOTINE [Suspect]
     Active Substance: NICOTINE
     Indication: Withdrawal syndrome
     Route: 062
     Dates: start: 20221201, end: 20221202
  8. THIAMINE [Suspect]
     Active Substance: THIAMINE
     Indication: Drug withdrawal syndrome
     Route: 048
     Dates: start: 20221201, end: 20221202
  9. VANCOMYCIN [Suspect]
     Active Substance: VANCOMYCIN
     Indication: Osteomyelitis
     Route: 042
     Dates: start: 20221201, end: 20221202

REACTIONS (3)
  - Maternal exposure during pregnancy [Unknown]
  - Off label use [Unknown]
  - Premature delivery [Unknown]
